FAERS Safety Report 25122847 (Version 1)
Quarter: 2025Q1

REPORT INFORMATION
  Report Type: Spontaneous
  Country: RU (occurrence: RU)
  Receive Date: 20250326
  Receipt Date: 20250326
  Transmission Date: 20250409
  Serious: Yes (Other)
  Sender: JOHNSON AND JOHNSON
  Company Number: RU-JNJFOC-20250369023

PATIENT
  Age: 44 Year
  Sex: Female

DRUGS (7)
  1. RISPERIDONE [Suspect]
     Active Substance: RISPERIDONE
     Indication: Schizophrenia
     Route: 030
  2. RISPERIDONE [Suspect]
     Active Substance: RISPERIDONE
  3. RISPERIDONE [Suspect]
     Active Substance: RISPERIDONE
  4. RISPERIDONE [Suspect]
     Active Substance: RISPERIDONE
  5. ARIPIPRAZOLE [Concomitant]
     Active Substance: ARIPIPRAZOLE
  6. LITHIUM [Concomitant]
     Active Substance: LITHIUM
  7. BIPERIDEN [Concomitant]
     Active Substance: BIPERIDEN

REACTIONS (1)
  - Deep vein thrombosis [Unknown]

NARRATIVE: CASE EVENT DATE: 20250304
